FAERS Safety Report 8451339 (Version 2)
Quarter: 2014Q2

REPORT INFORMATION
  Report Type: Spontaneous
  Country: US (occurrence: None)
  Receive Date: 20120216
  Receipt Date: 20140604
  Transmission Date: 20141212
  Serious: Yes (Hospitalization)
  Sender: FDA-Public Use
  Company Number: 20111017CINRY2376

PATIENT
  Age: 48 Year
  Sex: Female

DRUGS (13)
  1. CINRYZE [Suspect]
     Indication: HEREDITARY ANGIOEDEMA
     Dosage: (1000 IU, 2-3 TIMES A WEEK), INTRAVENOUS (1500 IU, 2 IN 1 WK), INTRAVENOUS
     Route: 042
     Dates: end: 201108
  2. CINRYZE [Suspect]
     Indication: PROPHYLAXIS
     Dosage: (1000 IU, 2-3 TIMES A WEEK), INTRAVENOUS (1500 IU, 2 IN 1 WK), INTRAVENOUS
     Route: 042
     Dates: end: 201108
  3. ZOLOFT [Concomitant]
  4. BUSPIRONE HYDROCHLORIDE [Concomitant]
  5. HYDROCODONE BITARTRATE + ACETAMINOPHEN [Concomitant]
  6. KALBITOR (INJECTION) [Concomitant]
  7. TRAMADOL ER [Concomitant]
  8. FIRAZYR [Concomitant]
  9. ZINC [Concomitant]
  10. VITAMIN C [Concomitant]
  11. CLARITIN [Concomitant]
  12. PROMETHAZINE [Concomitant]
  13. TYLENOL [Concomitant]

REACTIONS (16)
  - Hereditary angioedema [None]
  - Abdominal pain [None]
  - Syncope [None]
  - Nausea [None]
  - Dizziness [None]
  - Therapy change [None]
  - Lethargy [None]
  - Cystitis [None]
  - Angioedema [None]
  - Respiratory tract infection [None]
  - Otitis media [None]
  - Ear infection [None]
  - Urinary tract infection [None]
  - Asthma [None]
  - Bronchitis [None]
  - Gastrooesophageal reflux disease [None]
